FAERS Safety Report 10020350 (Version 1)
Quarter: 2014Q1

REPORT INFORMATION
  Report Type: Spontaneous
  Country: US (occurrence: US)
  Receive Date: 20140319
  Receipt Date: 20140319
  Transmission Date: 20141002
  Serious: No
  Sender: FDA-Public Use
  Company Number: US-BIOGENIDEC-2014BI022268

PATIENT
  Age: 53 Year
  Sex: Female

DRUGS (1)
  1. TECFIDERA [Suspect]
     Indication: MULTIPLE SCLEROSIS
     Route: 048
     Dates: start: 20140215, end: 20140221

REACTIONS (6)
  - Dyspnoea [Unknown]
  - Palpitations [Unknown]
  - Chest pain [Unknown]
  - Rash [Unknown]
  - Flushing [Unknown]
  - Pruritus [Unknown]
